FAERS Safety Report 5839778-9 (Version None)
Quarter: 2008Q3

REPORT INFORMATION
  Report Type: 
  Country: None (occurrence: None)
  Receive Date: 20080807
  Receipt Date: 20080730
  Transmission Date: 20090109
  Serious: Yes (Other)
  Sender: FDA-Public Use
  Company Number: 2008AL009044

PATIENT
  Age: 78 Year
  Sex: Female

DRUGS (2)
  1. DIGOXIN [Suspect]
     Indication: CARDIAC DISORDER
     Dosage: 0.25MG, QOD, PO
     Route: 048
  2. DIGOXIN [Suspect]
     Indication: CARDIAC DISORDER
     Dosage: 0.125MG, QOD, PO
     Route: 048

REACTIONS (2)
  - CARDIOACTIVE DRUG LEVEL INCREASED [None]
  - NAUSEA [None]
